FAERS Safety Report 4272597-6 (Version None)
Quarter: 2004Q1

REPORT INFORMATION
  Report Type: 
  Country: None (occurrence: None)
  Receive Date: 20040114
  Receipt Date: 20040114
  Transmission Date: 20041129
  Serious: Yes (Other)
  Sender: FDA-Public Use
  Company Number: None

PATIENT
  Age: 69 Year
  Sex: Male
  Weight: 90.7 kg

DRUGS (13)
  1. BENZOCAINE [Suspect]
     Indication: LOCAL ANAESTHESIA
     Dosage: ONE DOSE TOPICAL
     Route: 061
     Dates: start: 20030829, end: 20030829
  2. ACETAMINOPHEN [Concomitant]
  3. GLYBURIDE [Concomitant]
  4. INSULIN,HUMAN REG, NOVOLIN-R [Concomitant]
  5. FUROSEMIDE [Concomitant]
  6. ENALAPRILAT [Concomitant]
  7. POTASSIUM CHLORIDE [Concomitant]
  8. TERAZOSIN HCL [Concomitant]
  9. SIMVASTATIN [Concomitant]
  10. ASPIRIN [Concomitant]
  11. VANCOMYCIN HCL [Concomitant]
  12. AMIODARONE [Concomitant]
  13. CIMETIDINE HCL [Concomitant]

REACTIONS (2)
  - ACQUIRED METHAEMOGLOBINAEMIA [None]
  - RESPIRATORY DISTRESS [None]
